FAERS Safety Report 4316177-2 (Version None)
Quarter: 2004Q1

REPORT INFORMATION
  Report Type: 
  Country: None (occurrence: None)
  Receive Date: 20040311
  Receipt Date: 20040311
  Transmission Date: 20041129
  Serious: Yes (Hospitalization)
  Sender: FDA-Public Use
  Company Number: None

PATIENT
  Sex: Male
  Weight: 74.8435 kg

DRUGS (2)
  1. INTERFERON 3 MIU SCHERING [Suspect]
     Indication: RENAL CELL CARCINOMA STAGE UNSPECIFIED
     Dosage: 3 MIU QD SQ
     Route: 058
     Dates: start: 20040225, end: 20040305
  2. CELCOXIB 200 MG PHARMACIA [Suspect]
     Indication: RENAL CELL CARCINOMA STAGE UNSPECIFIED
     Dosage: 400 MG BID ORAL
     Route: 048
     Dates: start: 20040225, end: 20040305

REACTIONS (4)
  - ASTHENIA [None]
  - DEHYDRATION [None]
  - NAUSEA [None]
  - VOMITING [None]
